FAERS Safety Report 13117969 (Version 2)
Quarter: 2017Q2

REPORT INFORMATION
  Report Type: Spontaneous
  Country: US (occurrence: US)
  Receive Date: 20170116
  Receipt Date: 20170503
  Transmission Date: 20170830
  Serious: No
  Sender: FDA-Public Use
  Company Number: US-JNJFOC-20161207515

PATIENT
  Sex: Male

DRUGS (9)
  1. RISPERDAL [Suspect]
     Active Substance: RISPERIDONE
     Indication: SCHIZOPHRENIA
     Route: 048
     Dates: start: 20040102, end: 20040330
  2. RISPERDAL CONSTA [Suspect]
     Active Substance: RISPERIDONE
     Indication: PSYCHOTIC DISORDER
     Route: 030
  3. RISPERDAL [Suspect]
     Active Substance: RISPERIDONE
     Indication: PSYCHOTIC DISORDER
     Dosage: VARYING DOSE OF 2 TO 4 MG.
     Route: 048
     Dates: start: 20040913, end: 20140915
  4. RISPERDAL [Suspect]
     Active Substance: RISPERIDONE
     Indication: PSYCHOTIC DISORDER
     Route: 048
     Dates: start: 20040102, end: 20040330
  5. RISPERIDONE. [Suspect]
     Active Substance: RISPERIDONE
     Indication: PRODUCT USED FOR UNKNOWN INDICATION
     Route: 048
  6. RISPERDAL [Suspect]
     Active Substance: RISPERIDONE
     Indication: PSYCHOTIC DISORDER
     Route: 048
     Dates: end: 2015
  7. RISPERDAL CONSTA [Suspect]
     Active Substance: RISPERIDONE
     Indication: SCHIZOPHRENIA
     Route: 030
  8. RISPERDAL [Suspect]
     Active Substance: RISPERIDONE
     Indication: SCHIZOPHRENIA
     Route: 048
     Dates: end: 2015
  9. RISPERDAL [Suspect]
     Active Substance: RISPERIDONE
     Indication: SCHIZOPHRENIA
     Dosage: VARYING DOSE OF 2 TO 4 MG.
     Route: 048
     Dates: start: 20040913, end: 20140915

REACTIONS (7)
  - Libido decreased [Recovering/Resolving]
  - Blood prolactin increased [Unknown]
  - Semen volume decreased [Recovering/Resolving]
  - Gynaecomastia [Unknown]
  - Abnormal weight gain [Unknown]
  - Erectile dysfunction [Recovering/Resolving]
  - Ejaculation disorder [Recovering/Resolving]

NARRATIVE: CASE EVENT DATE: 2004
